FAERS Safety Report 25087742 (Version 1)
Quarter: 2025Q1

REPORT INFORMATION
  Report Type: Spontaneous
  Country: JP (occurrence: JP)
  Receive Date: 20250318
  Receipt Date: 20250318
  Transmission Date: 20250409
  Serious: Yes (Death)
  Sender: JOHNSON AND JOHNSON
  Company Number: JP-JNJFOC-20250336492

PATIENT
  Age: 8 Decade
  Sex: Female

DRUGS (3)
  1. OPSUMIT [Suspect]
     Active Substance: MACITENTAN
     Indication: Pulmonary hypertension
     Route: 048
     Dates: start: 20190603, end: 20250207
  2. UPTRAVI [Concomitant]
     Active Substance: SELEXIPAG
     Indication: Pulmonary hypertension
     Route: 048
     Dates: start: 20241014, end: 20250207
  3. RIOCIGUAT [Concomitant]
     Active Substance: RIOCIGUAT
     Indication: Pulmonary hypertension
     Route: 048
     Dates: start: 20230109, end: 20250207

REACTIONS (1)
  - Pulmonary hypertension [Fatal]
